FAERS Safety Report 11839267 (Version 1)
Quarter: 2015Q4

REPORT INFORMATION
  Report Type: Spontaneous
  Country: US (occurrence: US)
  Receive Date: 20151216
  Receipt Date: 20151216
  Transmission Date: 20160305
  Serious: No
  Sender: FDA-Public Use
  Company Number: US-TEVA-526362USA

PATIENT
  Sex: Female

DRUGS (3)
  1. OXYBUTYNIN [Suspect]
     Active Substance: OXYBUTYNIN
     Route: 065
  2. QUINIDINE [Suspect]
     Active Substance: QUINIDINE
     Route: 065
  3. QUININE SULFATE. [Suspect]
     Active Substance: QUININE SULFATE
     Route: 065

REACTIONS (1)
  - Drug hypersensitivity [Unknown]
